FAERS Safety Report 5480028-3 (Version None)
Quarter: 2007Q4

REPORT INFORMATION
  Report Type: 
  Country: None (occurrence: None)
  Receive Date: 20071008
  Receipt Date: 20071002
  Transmission Date: 20080405
  Serious: Yes (Life-Threatening)
  Sender: FDA-Public Use
  Company Number: AT-GENENTECH-248909

PATIENT
  Sex: Male

DRUGS (1)
  1. RITUXAN [Suspect]
     Indication: POLYARTHRITIS
     Dosage: 500 MG, UNK
     Route: 042

REACTIONS (1)
  - ARTERITIS [None]
